FAERS Safety Report 6599963-8 (Version None)
Quarter: 2010Q1

REPORT INFORMATION
  Report Type: 
  Country: None (occurrence: None)
  Receive Date: 20100224
  Receipt Date: 20100219
  Transmission Date: 20100710
  Serious: Yes (Other)
  Sender: FDA-Public Use
  Company Number: US-EISAI INC.-E2083-00033-SPO-US

PATIENT
  Age: 56 Year
  Sex: Male
  Weight: 62.2 kg

DRUGS (1)
  1. LUSEDRA [Suspect]
     Indication: SEDATION
     Dosage: UNSPECIFIED
     Route: 041
     Dates: start: 20100204, end: 20100210

REACTIONS (3)
  - ALANINE AMINOTRANSFERASE INCREASED [None]
  - ASPARTATE AMINOTRANSFERASE INCREASED [None]
  - BLOOD ALKALINE PHOSPHATASE INCREASED [None]
